FAERS Safety Report 12852176 (Version 1)
Quarter: 2016Q4

REPORT INFORMATION
  Report Type: Spontaneous
  Country: US (occurrence: US)
  Receive Date: 20161014
  Receipt Date: 20161014
  Transmission Date: 20170207
  Serious: Yes (Disabling)
  Sender: FDA-Public Use
  Company Number: None

PATIENT
  Age: 81 Year
  Sex: Male
  Weight: 58.5 kg

DRUGS (10)
  1. PURE WHEY PROTEIN POWDER [Concomitant]
  2. POWER PORT [Concomitant]
  3. NEXIUM [Concomitant]
     Active Substance: ESOMEPRAZOLE MAGNESIUM
  4. FOLEY CATHETER [Concomitant]
  5. VITAMIN B12 [Concomitant]
     Active Substance: CYANOCOBALAMIN
  6. D 5000 [Concomitant]
  7. ENSURE [Concomitant]
     Active Substance: AMINO ACIDS\DEXTROSE\ELECTROLYTES NOS\SOYBEAN OIL\VITAMINS
  8. LEVAQUIN [Suspect]
     Active Substance: LEVOFLOXACIN
     Indication: URINARY TRACT INFECTION
     Dosage: OTHER DAILY ORAL  7 TABLETS
     Route: 048
     Dates: start: 20160927, end: 20161003
  9. GLUCOSAMINE SULFATE [Concomitant]
     Active Substance: GLUCOSAMINE SULFATE
  10. C 1000 [Concomitant]

REACTIONS (4)
  - Movement disorder [None]
  - Arthralgia [None]
  - Joint swelling [None]
  - Erythema [None]

NARRATIVE: CASE EVENT DATE: 20161003
